FAERS Safety Report 9775896 (Version 3)
Quarter: 2014Q1

REPORT INFORMATION
  Report Type: Spontaneous
  Country: JP (occurrence: JP)
  Receive Date: 20131220
  Receipt Date: 20140219
  Transmission Date: 20141002
  Serious: Yes (Hospitalization)
  Sender: FDA-Public Use
  Company Number: JP-GLAXOSMITHKLINE-B0954375A

PATIENT
  Age: 62 Year
  Sex: Female
  Weight: 43 kg

DRUGS (13)
  1. VALTREX [Suspect]
     Indication: HERPES ZOSTER
     Dosage: 500MG PER DAY
     Route: 048
     Dates: start: 20131212, end: 20131213
  2. FEBURIC [Concomitant]
     Indication: HYPERURICAEMIA
     Dosage: 20MG PER DAY
     Route: 048
  3. FUROSEMIDE [Concomitant]
     Indication: RENAL FAILURE CHRONIC
     Dosage: 40MG TWICE PER DAY
     Route: 048
  4. FLUITRAN [Concomitant]
     Indication: RENAL FAILURE CHRONIC
     Dosage: 2MG PER DAY
     Route: 048
  5. ROCALTROL [Concomitant]
     Indication: RENAL FAILURE CHRONIC
     Dosage: .25MCG PER DAY
     Route: 048
  6. KAYEXALATE [Concomitant]
     Indication: RENAL FAILURE CHRONIC
     Dosage: 5G PER DAY
     Route: 048
  7. MIYA BM [Concomitant]
     Indication: DIARRHOEA
     Dosage: 1IUAX THREE TIMES PER DAY
     Route: 048
  8. TAKEPRON [Concomitant]
     Indication: GASTRITIS
     Dosage: 15MG PER DAY
     Route: 048
  9. SODIUM BICARBONATE [Concomitant]
     Indication: GASTRITIS
     Dosage: .5G THREE TIMES PER DAY
     Route: 048
  10. TANKARU [Concomitant]
     Indication: GASTRITIS
     Dosage: 500MG THREE TIMES PER DAY
     Route: 048
  11. ALDOMET [Concomitant]
     Indication: HYPERTENSION
     Dosage: 250MG THREE TIMES PER DAY
     Route: 048
  12. ADALAT-CR [Concomitant]
     Indication: HYPERTENSION
     Dosage: 40MG TWICE PER DAY
     Route: 048
  13. ANGIOTENSIN II ANTAGONIST [Concomitant]
     Indication: HYPERTENSION
     Dosage: 40MG PER DAY
     Route: 048

REACTIONS (2)
  - Toxic encephalopathy [Recovered/Resolved]
  - Altered state of consciousness [Recovered/Resolved]
